FAERS Safety Report 18772193 (Version 1)
Quarter: 2021Q1

REPORT INFORMATION
  Report Type: Spontaneous
  Country: US (occurrence: US)
  Receive Date: 20210121
  Receipt Date: 20210121
  Transmission Date: 20210419
  Serious: No
  Sender: FDA-Public Use
  Company Number: US-PERRIGO-20US004221

PATIENT
  Sex: Female
  Weight: 45.35 kg

DRUGS (1)
  1. NYSTATIN. [Suspect]
     Active Substance: NYSTATIN
     Indication: VAGINAL DISCHARGE
     Dosage: UNKNOWN, BID
     Route: 067
     Dates: end: 202002

REACTIONS (2)
  - Incorrect route of product administration [Recovered/Resolved]
  - Off label use [Recovered/Resolved]
